FAERS Safety Report 20871302 (Version 1)
Quarter: 2022Q2

REPORT INFORMATION
  Report Type: Spontaneous
  Country: US (occurrence: US)
  Receive Date: 20220525
  Receipt Date: 20220525
  Transmission Date: 20220721
  Serious: Yes (Hospitalization)
  Sender: FDA-Public Use
  Company Number: US-MYLANLABS-2022M1038798

PATIENT
  Age: 89 Year
  Sex: Female

DRUGS (4)
  1. OLANZAPINE [Interacting]
     Active Substance: OLANZAPINE
     Indication: Aggression
     Dosage: 10 MILLIGRAM
     Route: 065
  2. DROPERIDOL [Interacting]
     Active Substance: DROPERIDOL
     Indication: Aggression
     Dosage: 1.25 MILLIGRAM
     Route: 065
  3. DROPERIDOL [Interacting]
     Active Substance: DROPERIDOL
     Dosage: 5 MILLIGRAM
     Route: 065
  4. LORAZEPAM [Concomitant]
     Active Substance: LORAZEPAM
     Indication: Aggression
     Dosage: 2 MILLIGRAM
     Route: 065

REACTIONS (2)
  - Extrapyramidal disorder [Recovered/Resolved]
  - Drug interaction [Recovered/Resolved]
